FAERS Safety Report 9742228 (Version 1)
Quarter: 2013Q4

REPORT INFORMATION
  Report Type: Report from Study
  Country: FR (occurrence: FR)
  Receive Date: 20131210
  Receipt Date: 20131210
  Transmission Date: 20140711
  Serious: Yes (Other)
  Sender: FDA-Public Use
  Company Number: FR-ASTELLAS-2013EU010721

PATIENT
  Age: 80 Year
  Sex: Male

DRUGS (3)
  1. ENZALUTAMIDE [Suspect]
     Indication: PROSTATE CANCER
     Dosage: 160 MG, UID/QD
     Route: 048
     Dates: start: 20130507
  2. CALCIPARINE [Concomitant]
     Indication: THROMBOSIS
     Dosage: 0.4 UNK, BID
     Route: 048
     Dates: start: 201211
  3. ZOLADEX                            /00732101/ [Concomitant]
     Indication: PROSTATE CANCER
     Dosage: 11.25 UNK, UID/QD
     Route: 048

REACTIONS (8)
  - Presbyacusis [Not Recovered/Not Resolved]
  - Conjunctival irritation [Not Recovered/Not Resolved]
  - Paronychia [Not Recovered/Not Resolved]
  - Paraesthesia [Not Recovered/Not Resolved]
  - Hyperkalaemia [Recovered/Resolved]
  - Alopecia [Not Recovered/Not Resolved]
  - Rhinitis [Not Recovered/Not Resolved]
  - Neck pain [Not Recovered/Not Resolved]
